APPROVED DRUG PRODUCT: AZITHROMYCIN
Active Ingredient: AZITHROMYCIN
Strength: EQ 500MG BASE/VIAL
Dosage Form/Route: INJECTABLE;INJECTION
Application: A065501 | Product #001 | TE Code: AP
Applicant: GLAND PHARMA LTD
Approved: Nov 9, 2009 | RLD: No | RS: No | Type: RX